FAERS Safety Report 25518125 (Version 2)
Quarter: 2025Q4

REPORT INFORMATION
  Report Type: Spontaneous
  Country: EU (occurrence: EU)
  Receive Date: 20250704
  Receipt Date: 20251018
  Transmission Date: 20260117
  Serious: Yes (Hospitalization, Other)
  Sender: AUROBINDO
  Company Number: EU-MLMSERVICE-20250617-PI535953-00119-3

PATIENT
  Age: 57 Year
  Sex: Female

DRUGS (4)
  1. LOXAPINE [Suspect]
     Active Substance: LOXAPINE
     Indication: Schizophrenia
     Dosage: 400 MILLIGRAM, ONCE A DAY
     Route: 065
  2. CLOZAPINE [Suspect]
     Active Substance: CLOZAPINE
     Indication: Schizophrenia
     Dosage: UNK
     Route: 065
  3. DIAZEPAM [Suspect]
     Active Substance: DIAZEPAM
     Indication: Schizophrenia
     Dosage: 40 MILLIGRAM, ONCE A DAY
     Route: 065
  4. ZUCLOPENTHIXOL [Suspect]
     Active Substance: ZUCLOPENTHIXOL
     Indication: Schizophrenia
     Dosage: 200 MILLIGRAM, ONCE A DAY
     Route: 065

REACTIONS (3)
  - Respiratory distress [Recovering/Resolving]
  - Hypothermia [Recovered/Resolved]
  - Pneumonia [Unknown]
